FAERS Safety Report 8258736-0 (Version None)
Quarter: 2012Q2

REPORT INFORMATION
  Report Type: 
  Country: None (occurrence: None)
  Receive Date: 20120404
  Receipt Date: 20120404
  Transmission Date: 20120825
  Serious: Yes (Hospitalization)
  Sender: FDA-Public Use
  Company Number: None

PATIENT
  Age: 90 Year
  Sex: Female
  Weight: 71.3 kg

DRUGS (1)
  1. LISINOPRIL [Suspect]
     Dosage: 20.0 MG
     Route: 048

REACTIONS (4)
  - RESPIRATORY DISTRESS [None]
  - BLOOD PRESSURE DECREASED [None]
  - SWOLLEN TONGUE [None]
  - HEART RATE DECREASED [None]
